FAERS Safety Report 4942741-3 (Version None)
Quarter: 2006Q1

REPORT INFORMATION
  Report Type: 
  Country: None (occurrence: None)
  Receive Date: 20060314
  Receipt Date: 20060301
  Transmission Date: 20060701
  Serious: Yes (Other)
  Sender: FDA-Public Use
  Company Number: PHBS2006NZ03299

PATIENT

DRUGS (1)
  1. CLOZARIL [Suspect]
     Dosage: 300 MG/D
     Route: 048
     Dates: start: 20060126

REACTIONS (1)
  - DIARRHOEA HAEMORRHAGIC [None]
